FAERS Safety Report 11379351 (Version 1)
Quarter: 2015Q3

REPORT INFORMATION
  Report Type: Report from Study
  Country: MX (occurrence: MX)
  Receive Date: 20150813
  Receipt Date: 20150813
  Transmission Date: 20151125
  Serious: Yes (Other)
  Sender: FDA-Public Use
  Company Number: MX-TAKEDA-2015TJP014929

PATIENT
  Age: 25 Year
  Sex: Male

DRUGS (1)
  1. PIOGLITAZONE, METFORMIN [Suspect]
     Active Substance: METFORMIN HYDROCHLORIDE\PIOGLITAZONE HYDROCHLORIDE
     Indication: PRODUCT USED FOR UNKNOWN INDICATION
     Dosage: UNK
     Route: 048
     Dates: start: 201504

REACTIONS (9)
  - Fear [Unknown]
  - Paraesthesia [Unknown]
  - Tachycardia [Unknown]
  - Hypertension [Unknown]
  - Agitation [Unknown]
  - Nervousness [Unknown]
  - Blepharospasm [Unknown]
  - Hepatic steatosis [Unknown]
  - Anxiety [Unknown]

NARRATIVE: CASE EVENT DATE: 20150727
